FAERS Safety Report 7790919-6 (Version None)
Quarter: 2011Q3

REPORT INFORMATION
  Report Type: 
  Country: None (occurrence: None)
  Receive Date: 20110930
  Receipt Date: 20110930
  Transmission Date: 20111222
  Serious: Yes (Hospitalization)
  Sender: FDA-Public Use
  Company Number: None

PATIENT
  Age: 57 Year
  Sex: Female
  Weight: 67.9 kg

DRUGS (1)
  1. PLAQUENIL [Suspect]

REACTIONS (3)
  - RASH MACULO-PAPULAR [None]
  - VAGINAL ULCERATION [None]
  - OESOPHAGEAL ULCER [None]
